FAERS Safety Report 21103940 (Version 4)
Quarter: 2022Q4

REPORT INFORMATION
  Report Type: Report from Study
  Country: US (occurrence: US)
  Receive Date: 20220720
  Receipt Date: 20221028
  Transmission Date: 20230112
  Serious: No
  Sender: FDA-Public Use
  Company Number: US-NOVARTISTESTPH-NVSC2022US163709

PATIENT
  Age: 7 Year
  Sex: Female

DRUGS (2)
  1. ILARIS [Suspect]
     Active Substance: CANAKINUMAB
     Indication: Still^s disease
     Dosage: 90 MG, QMO
     Route: 058
     Dates: start: 20220228
  2. ILARIS [Suspect]
     Active Substance: CANAKINUMAB
     Dosage: 120 MG, Q4W
     Route: 058

REACTIONS (7)
  - SARS-CoV-2 test positive [Unknown]
  - Body temperature increased [Unknown]
  - Nausea [Unknown]
  - Pyrexia [Unknown]
  - Muscle spasms [Unknown]
  - Vomiting [Unknown]
  - Abdominal pain upper [Unknown]

NARRATIVE: CASE EVENT DATE: 20220716
